FAERS Safety Report 10927403 (Version 1)
Quarter: 2015Q1

REPORT INFORMATION
  Report Type: Spontaneous
  Country: FR (occurrence: FR)
  Receive Date: 20150318
  Receipt Date: 20150318
  Transmission Date: 20150721
  Serious: Yes (Other)
  Sender: FDA-Public Use
  Company Number: FR-AMGEN-FRASP2015024678

PATIENT
  Age: 72 Year
  Sex: Male

DRUGS (21)
  1. FOLINIC ACID [Concomitant]
     Active Substance: LEUCOVORIN
     Indication: ADENOCARCINOMA GASTRIC
     Dosage: UNK
  2. CRESTOR [Concomitant]
     Active Substance: ROSUVASTATIN CALCIUM
     Dosage: UNK
  3. FOLINIC ACID [Concomitant]
     Active Substance: LEUCOVORIN
     Indication: METASTASES TO LYMPH NODES
  4. OXALIPLATIN. [Concomitant]
     Active Substance: OXALIPLATIN
     Indication: METASTASES TO KIDNEY
  5. ASPEGIC [Concomitant]
     Active Substance: ASPIRIN DL-LYSINE
     Dosage: 1 DF (1DF, 1 IN 1 DAY), 100 MG, PER DAY
     Route: 048
     Dates: start: 201003
  6. COVERSYL                           /00790702/ [Concomitant]
     Active Substance: PERINDOPRIL
     Dosage: UNK
  7. OXALIPLATIN. [Concomitant]
     Active Substance: OXALIPLATIN
     Indication: ADENOCARCINOMA GASTRIC
     Dosage: UNK
  8. IRINOTECAN [Concomitant]
     Active Substance: IRINOTECAN
     Indication: ADENOCARCINOMA GASTRIC
     Dosage: UNK
  9. IRINOTECAN [Concomitant]
     Active Substance: IRINOTECAN
     Indication: METASTASES TO LYMPH NODES
  10. INNOHEP [Concomitant]
     Active Substance: TINZAPARIN SODIUM
     Indication: PULMONARY EMBOLISM
     Dosage: 16000 IU, PER DAY
     Route: 058
     Dates: start: 201306, end: 20141205
  11. NEULASTA [Suspect]
     Active Substance: PEGFILGRASTIM
     Indication: NEUTROPENIA
     Dosage: UNK UNK, (1 DAY)
     Route: 058
     Dates: start: 20141123, end: 20141123
  12. FOLINIC ACID [Concomitant]
     Active Substance: LEUCOVORIN
     Indication: METASTASES TO KIDNEY
  13. 5 FU [Concomitant]
     Active Substance: FLUOROURACIL
     Indication: METASTASES TO LYMPH NODES
  14. IRINOTECAN [Concomitant]
     Active Substance: IRINOTECAN
     Indication: METASTASES TO KIDNEY
  15. SECTRAL [Concomitant]
     Active Substance: ACEBUTOLOL HYDROCHLORIDE
     Dosage: UNK
  16. ESOMEPRAZOLE [Concomitant]
     Active Substance: ESOMEPRAZOLE
     Dosage: UNK
  17. FUROSEMIDE. [Concomitant]
     Active Substance: FUROSEMIDE
     Dosage: UNK
  18. 5 FU [Concomitant]
     Active Substance: FLUOROURACIL
     Indication: METASTASES TO KIDNEY
  19. OXALIPLATIN. [Concomitant]
     Active Substance: OXALIPLATIN
     Indication: METASTASES TO LYMPH NODES
  20. LOVENOX [Concomitant]
     Active Substance: ENOXAPARIN SODIUM
     Indication: PULMONARY EMBOLISM
     Dosage: 6000 IU, PER DAY
  21. 5 FU [Concomitant]
     Active Substance: FLUOROURACIL
     Indication: ADENOCARCINOMA GASTRIC
     Dosage: UNK

REACTIONS (1)
  - Subcutaneous haematoma [Recovering/Resolving]

NARRATIVE: CASE EVENT DATE: 20141124
